FAERS Safety Report 19218439 (Version 1)
Quarter: 2021Q2

REPORT INFORMATION
  Report Type: Spontaneous
  Country: DE (occurrence: DE)
  Receive Date: 20210505
  Receipt Date: 20210505
  Transmission Date: 20210717
  Serious: Yes (Hospitalization, Other)
  Sender: FDA-Public Use
  Company Number: NVSC2021DE099271

PATIENT
  Age: 60 Year
  Sex: Female

DRUGS (5)
  1. PREGABALIN. [Concomitant]
     Active Substance: PREGABALIN
     Indication: PRODUCT USED FOR UNKNOWN INDICATION
     Dosage: UNK
     Route: 065
  2. MYLEPSINUM [Concomitant]
     Active Substance: PRIMIDONE
     Indication: PRODUCT USED FOR UNKNOWN INDICATION
     Dosage: UNK
     Route: 065
  3. TEGRETAL RETARD [Suspect]
     Active Substance: CARBAMAZEPINE
     Dosage: 400 MG (1 ? 0.5 ? 0.5 )
     Route: 065
  4. TEGRETAL RETARD [Suspect]
     Active Substance: CARBAMAZEPINE
     Indication: PRODUCT USED FOR UNKNOWN INDICATION
     Dosage: 400 MG (1?0.5?1)
     Route: 065
     Dates: start: 2014
  5. TEGRETAL RETARD [Suspect]
     Active Substance: CARBAMAZEPINE
     Dosage: 400 MG (1?0.5?1)
     Route: 065

REACTIONS (6)
  - Feeling abnormal [Unknown]
  - Hyponatraemia [Unknown]
  - Platelet count decreased [Unknown]
  - White blood cell count decreased [Unknown]
  - Red blood cell count decreased [Unknown]
  - Renal impairment [Unknown]

NARRATIVE: CASE EVENT DATE: 201807
